FAERS Safety Report 6907654-6 (Version None)
Quarter: 2010Q3

REPORT INFORMATION
  Report Type: 
  Country: None (occurrence: None)
  Receive Date: 20100715
  Receipt Date: 20090709
  Transmission Date: 20110219
  Serious: Yes (Other)
  Sender: FDA-Public Use
  Company Number: 2009232388

PATIENT
  Age: 50 Year
  Sex: Female

DRUGS (4)
  1. CLINDAMYCIN HYDROCHLORIDE [Suspect]
  2. LEVOTHYROXINE SODIUM [Concomitant]
  3. LISINOPRIL [Concomitant]
  4. OLOPATADINE (OLOPATADINE) [Concomitant]

REACTIONS (1)
  - HYPERSENSITIVITY [None]
